FAERS Safety Report 4275133-3 (Version None)
Quarter: 2004Q1

REPORT INFORMATION
  Report Type: 
  Country: None (occurrence: None)
  Receive Date: 20040116
  Receipt Date: 20040106
  Transmission Date: 20041129
  Serious: Yes (Other)
  Sender: FDA-Public Use
  Company Number: 2004001497

PATIENT
  Sex: Female

DRUGS (2)
  1. PHENYTOIN SODIUM [Suspect]
     Indication: CONVULSION
     Dosage: 300 MG (DIALY), ORAL
     Route: 048
     Dates: start: 19890801
  2. PRIMIDONE [Concomitant]

REACTIONS (4)
  - CEREBRAL CYST [None]
  - CEREBRAL HAEMORRHAGE [None]
  - GINGIVAL HYPERTROPHY [None]
  - MIGRAINE [None]
